FAERS Safety Report 6711291-6 (Version None)
Quarter: 2010Q2

REPORT INFORMATION
  Report Type: 
  Country: None (occurrence: None)
  Receive Date: 20100505
  Receipt Date: 20100302
  Transmission Date: 20101027
  Serious: No
  Sender: FDA-Public Use
  Company Number: US-BAYER-201012627NA

PATIENT
  Age: 9 Year
  Sex: Male
  Weight: 28 kg

DRUGS (1)
  1. ULTRAVIST (PHARMACY BULK) [Suspect]
     Indication: ABDOMINAL PAIN
     Dosage: TOTAL DAILY DOSE: 60 ML  UNIT DOSE: 500 ML
     Route: 042
     Dates: start: 20100121, end: 20100121

REACTIONS (1)
  - SNEEZING [None]
